FAERS Safety Report 8183434 (Version 3)
Quarter: 2012Q4

REPORT INFORMATION
  Report Type: 
  Country: US (occurrence: US)
  Receive Date: 20111017
  Receipt Date: 20121019
  Transmission Date: 20130627
  Serious: Yes (Hospitalization, Other)
  Sender: FDA-Public Use
  Company Number: US-ROXANE LABORATORIES, INC.-2011-RO-01453RO

PATIENT
  Age: 46 Year
  Sex: Female

DRUGS (3)
  1. DEXAMETHASONE [Suspect]
     Indication: PITUITARY ENLARGEMENT
     Route: 048
     Dates: start: 20110824
  2. DEXAMETHASONE [Suspect]
     Dosage: 2 mg
     Route: 048
  3. IPILIMUMAB [Suspect]
     Indication: MALIGNANT MELANOMA
     Route: 042
     Dates: start: 20110629, end: 20110907

REACTIONS (6)
  - Adrenal insufficiency [Recovered/Resolved]
  - Hyponatraemia [Recovered/Resolved]
  - Optic neuritis [Not Recovered/Not Resolved]
  - Dizziness [Recovered/Resolved]
  - Vertigo [Recovered/Resolved]
  - Abdominal discomfort [Recovered/Resolved]
